FAERS Safety Report 13233266 (Version 3)
Quarter: 2017Q1

REPORT INFORMATION
  Report Type: Report from Study
  Country: None (occurrence: US)
  Receive Date: 20170215
  Receipt Date: 20170316
  Transmission Date: 20170428
  Serious: Yes (Other)
  Sender: FDA-Public Use
  Company Number: US-ABBVIE-17K-163-1868232-00

PATIENT
  Sex: Male

DRUGS (2)
  1. HUMIRA [Suspect]
     Active Substance: ADALIMUMAB
     Indication: ANKYLOSING SPONDYLITIS
     Route: 058
     Dates: start: 2011, end: 20161219
  2. HUMIRA [Suspect]
     Active Substance: ADALIMUMAB
     Route: 058
     Dates: start: 20170215

REACTIONS (6)
  - Sepsis [Unknown]
  - Renal neoplasm [Recovered/Resolved]
  - Large intestine polyp [Recovered/Resolved]
  - Nephrolithiasis [Recovered/Resolved]
  - Influenza [Recovered/Resolved]
  - Benign neoplasm of bladder [Recovered/Resolved]

NARRATIVE: CASE EVENT DATE: 2014
